FAERS Safety Report 9049909 (Version 1)
Quarter: 2013Q1

REPORT INFORMATION
  Report Type: Spontaneous
  Country: CH (occurrence: CH)
  Receive Date: 20130205
  Receipt Date: 20130205
  Transmission Date: 20140127
  Serious: Yes (Hospitalization, Other)
  Sender: FDA-Public Use
  Company Number: CH-AMGEN-CHESP2013007287

PATIENT
  Age: 75 Year
  Sex: Female

DRUGS (3)
  1. ENBREL [Suspect]
     Indication: RHEUMATOID ARTHRITIS
     Dosage: UNK
  2. METOJECT [Suspect]
     Indication: RHEUMATOID ARTHRITIS
     Dosage: UNK
     Dates: end: 2012
  3. FORSTEO [Concomitant]
     Indication: OSTEOPOROSIS
     Dosage: 20 UG, 1X/DAY
     Route: 058
     Dates: start: 20120620

REACTIONS (1)
  - Pulmonary embolism [Unknown]
